FAERS Safety Report 7738184-X (Version None)
Quarter: 2011Q3

REPORT INFORMATION
  Report Type: 
  Country: None (occurrence: None)
  Receive Date: 20110908
  Receipt Date: 20110905
  Transmission Date: 20111222
  Serious: Yes (Hospitalization)
  Sender: FDA-Public Use
  Company Number: DE-AMGEN-DEUSP2011045303

PATIENT
  Age: 87 Year
  Sex: Female

DRUGS (2)
  1. CORTISONE ACETATE [Concomitant]
     Dosage: UNK
  2. PROLIA [Suspect]
     Indication: PRODUCT USED FOR UNKNOWN INDICATION
     Dosage: UNK

REACTIONS (1)
  - INFECTION [None]
